FAERS Safety Report 9552601 (Version 1)
Quarter: 2013Q2

REPORT INFORMATION
  Report Type: Spontaneous
  Country: US (occurrence: None)
  Receive Date: 20130524
  Receipt Date: 20130524
  Transmission Date: 20140414
  Serious: No
  Sender: FDA-Public Use
  Company Number: PHEH2013US004749

PATIENT
  Age: 23 Year
  Sex: Male
  Weight: 68 kg

DRUGS (4)
  1. GILENYA (FINGOLIMOD) CAPSULE, 0.5MG [Suspect]
     Indication: MULTIPLE SCLEROSIS
     Route: 048
  2. MULTIVITAMINS (ASCORBIC ACID, ERGOCALCIFEROL, FOLIC ACID, NICOTINAMIDE, PANTHENOL, RETINOL, RIBOFLAVIN, THIAMINE HYDROCHLORIDE) CAPSULE [Concomitant]
  3. VIT D (ERGOCALCIFEROL) CAPSULE [Concomitant]
  4. VITAMIN B (VITAMIN B COMPLEX) [Concomitant]

REACTIONS (4)
  - Photophobia [None]
  - Fatigue [None]
  - Nasopharyngitis [None]
  - Alopecia [None]
